FAERS Safety Report 20027445 (Version 2)
Quarter: 2021Q4

REPORT INFORMATION
  Report Type: Spontaneous
  Country: US (occurrence: US)
  Receive Date: 20211103
  Receipt Date: 20211110
  Transmission Date: 20220304
  Serious: No
  Sender: FDA-Public Use
  Company Number: US-JNJFOC-20211059919

PATIENT

DRUGS (1)
  1. IMODIUM A-D [Suspect]
     Active Substance: LOPERAMIDE HYDROCHLORIDE
     Indication: Product used for unknown indication
     Dosage: TOOK 7 CAPLETS OF THE IMODIUM
     Route: 065

REACTIONS (3)
  - Expired product administered [Unknown]
  - Bowel movement irregularity [Unknown]
  - Faeces discoloured [Unknown]
